FAERS Safety Report 4476320-1 (Version None)
Quarter: 2004Q4

REPORT INFORMATION
  Report Type: 
  Country: None (occurrence: None)
  Receive Date: 20041016
  Receipt Date: 20041005
  Transmission Date: 20050328
  Serious: Yes (Hospitalization)
  Sender: FDA-Public Use
  Company Number: AU-MERCK-0410AUS00077

PATIENT
  Age: 41 Year
  Sex: Male

DRUGS (10)
  1. NORVASC [Concomitant]
     Route: 065
  2. BACLOFEN [Concomitant]
     Indication: MUSCLE SPASMS
     Route: 065
  3. DOTHEP [Concomitant]
     Indication: MIGRAINE
     Route: 065
  4. CLEXANE (ENOXAPARIN SODIUM) [Concomitant]
     Route: 065
  5. ZESTRIL [Concomitant]
     Route: 065
  6. OXYCONTIN [Concomitant]
     Route: 065
  7. QUININE [Concomitant]
     Route: 065
  8. VIOXX [Suspect]
     Route: 048
     Dates: start: 20000101, end: 20040301
  9. VIOXX [Suspect]
     Route: 048
     Dates: start: 20040101, end: 20041001
  10. VITAMINS (UNSPECIFIED) [Concomitant]
     Route: 065

REACTIONS (3)
  - BLOOD PRESSURE INCREASED [None]
  - DYSPNOEA [None]
  - HEART RATE INCREASED [None]
